FAERS Safety Report 6682009-0 (Version None)
Quarter: 2010Q2

REPORT INFORMATION
  Report Type: 
  Country: None (occurrence: None)
  Receive Date: 20100414
  Receipt Date: 20100414
  Transmission Date: 20101027
  Serious: Yes (Life-Threatening, Hospitalization)
  Sender: FDA-Public Use
  Company Number: None

PATIENT
  Age: 77 Year
  Weight: 72.1219 kg

DRUGS (1)
  1. MELPHALAN HYDROCHLORIDE [Suspect]
     Indication: MULTIPLE MYELOMA
     Dosage: 14 MG DAILY X 4 DAYS/MO PO
     Route: 048
     Dates: start: 20100213, end: 20100216

REACTIONS (7)
  - ABDOMINAL PAIN UPPER [None]
  - ASTHENIA [None]
  - CLOSTRIDIAL INFECTION [None]
  - DIARRHOEA [None]
  - FEBRILE NEUTROPENIA [None]
  - PSEUDOMONAS INFECTION [None]
  - WHITE BLOOD CELL COUNT DECREASED [None]
